FAERS Safety Report 5192187-0 (Version None)
Quarter: 2006Q4

REPORT INFORMATION
  Report Type: 
  Country: None (occurrence: None)
  Receive Date: 20061227
  Receipt Date: 20061213
  Transmission Date: 20070319
  Serious: Yes (Life-Threatening, Disabling, Other)
  Sender: FDA-Public Use
  Company Number: 2006UW28037

PATIENT
  Age: 19452 Day
  Sex: Female

DRUGS (15)
  1. CRESTOR [Suspect]
     Route: 048
     Dates: start: 20061211, end: 20061211
  2. OXYCONTIN [Concomitant]
     Route: 048
  3. PARIET [Concomitant]
     Route: 048
  4. MELOXICAM [Concomitant]
     Route: 048
  5. METFORMIN HCL [Concomitant]
     Route: 048
  6. OXYBUTYNIN [Concomitant]
     Route: 048
  7. ALTACE [Concomitant]
     Route: 048
  8. GM HYDERM 1% [Concomitant]
     Dosage: APPLY TO AFFECTED AREAS THREE TIMES DAILY
  9. BENZYDAMINE 0.15% [Concomitant]
     Dosage: GARGLE WITH 2 TSP EVERY THREE HOURS
  10. ASPIRIN [Concomitant]
     Route: 048
  11. FERROUS GLUCONATE [Concomitant]
     Route: 048
  12. TRAZODONE HCL [Concomitant]
     Route: 048
  13. CLONAZEPAM [Concomitant]
     Route: 048
  14. SENOKOT [Concomitant]
     Dosage: 8.5 MG TABLETS: 3 TABLETS AT LUNCH, 4 AT SUPPER
     Route: 048
  15. EFFEXOR [Concomitant]
     Route: 048

REACTIONS (4)
  - ANAPHYLACTIC REACTION [None]
  - DYSPHAGIA [None]
  - HEART RATE INCREASED [None]
  - LARYNGITIS [None]
